FAERS Safety Report 18953282 (Version 10)
Quarter: 2023Q2

REPORT INFORMATION
  Report Type: Spontaneous
  Country: CA (occurrence: CA)
  Receive Date: 20210301
  Receipt Date: 20230424
  Transmission Date: 20230721
  Serious: Yes (Hospitalization, Disabling, Other)
  Sender: FDA-Public Use
  Company Number: NVSC2021CA040308

PATIENT
  Age: 58 Year
  Sex: Female
  Weight: 90 kg

DRUGS (281)
  1. ERELZI [Suspect]
     Active Substance: ETANERCEPT-SZZS
     Indication: Rheumatoid arthritis
     Dosage: 25 MG, QW
     Route: 065
  2. ERELZI [Suspect]
     Active Substance: ETANERCEPT-SZZS
     Dosage: 50 MG, QW
     Route: 065
  3. ERELZI [Suspect]
     Active Substance: ETANERCEPT-SZZS
     Dosage: 25 MG, Q2W
     Route: 065
  4. ADALIMUMAB [Suspect]
     Active Substance: ADALIMUMAB
     Indication: Rheumatoid arthritis
     Dosage: 40 MG (SOLUTION SUBCUTANEOUS)
     Route: 058
  5. ADALIMUMAB [Suspect]
     Active Substance: ADALIMUMAB
     Dosage: 40 MG, QW
     Route: 058
  6. ADALIMUMAB [Suspect]
     Active Substance: ADALIMUMAB
     Dosage: UNK
     Route: 065
  7. RITUXIMAB [Suspect]
     Active Substance: RITUXIMAB
     Indication: Rheumatoid arthritis
     Dosage: 1000 MG, BID
     Route: 042
  8. RITUXIMAB [Suspect]
     Active Substance: RITUXIMAB
     Dosage: 1000 MG, BID (12 MONTHS)
     Route: 042
  9. RITUXIMAB [Suspect]
     Active Substance: RITUXIMAB
     Dosage: 1000 MG, QD
     Route: 065
  10. RITUXIMAB [Suspect]
     Active Substance: RITUXIMAB
     Dosage: 1000 MG, QD
     Route: 042
  11. RITUXIMAB [Suspect]
     Active Substance: RITUXIMAB
     Dosage: 1000 MG, BID
     Route: 065
  12. RITUXIMAB [Suspect]
     Active Substance: RITUXIMAB
     Dosage: 1000 MG
     Route: 065
  13. RITUXIMAB [Suspect]
     Active Substance: RITUXIMAB
     Dosage: 1000 MG, BID
     Route: 042
  14. RITUXIMAB [Suspect]
     Active Substance: RITUXIMAB
     Dosage: 1000 MG, BID
     Route: 042
  15. RITUXIMAB [Suspect]
     Active Substance: RITUXIMAB
     Dosage: 1000 MG, BID
     Route: 041
  16. RITUXIMAB [Suspect]
     Active Substance: RITUXIMAB
     Dosage: 760 MG, QW
     Route: 042
  17. RITUXIMAB [Suspect]
     Active Substance: RITUXIMAB
     Dosage: UNK, BID
     Route: 042
  18. RITUXIMAB [Suspect]
     Active Substance: RITUXIMAB
     Dosage: UNK, QD
     Route: 042
  19. RITUXIMAB [Suspect]
     Active Substance: RITUXIMAB
     Dosage: UNK, QD
     Route: 042
  20. LEFLUNOMIDE [Suspect]
     Active Substance: LEFLUNOMIDE
     Indication: Rheumatoid arthritis
     Dosage: 20 MG
     Route: 048
  21. LEFLUNOMIDE [Suspect]
     Active Substance: LEFLUNOMIDE
     Dosage: 380 MG
     Route: 048
  22. LEFLUNOMIDE [Suspect]
     Active Substance: LEFLUNOMIDE
     Dosage: UNK
     Route: 065
  23. LEFLUNOMIDE [Suspect]
     Active Substance: LEFLUNOMIDE
     Dosage: 500 MG
     Route: 048
  24. LEFLUNOMIDE [Suspect]
     Active Substance: LEFLUNOMIDE
     Dosage: 20 MG, QD
     Route: 048
  25. LEFLUNOMIDE [Suspect]
     Active Substance: LEFLUNOMIDE
     Dosage: UNK
     Route: 048
  26. METHOTREXATE [Suspect]
     Active Substance: METHOTREXATE
     Indication: Rheumatoid arthritis
     Dosage: 12 MG, Q4W
     Route: 065
  27. METHOTREXATE [Suspect]
     Active Substance: METHOTREXATE
     Dosage: 70 MG, QW
     Route: 058
  28. METHOTREXATE [Suspect]
     Active Substance: METHOTREXATE
     Dosage: 17.5 MG, Q4W
     Route: 058
  29. METHOTREXATE [Suspect]
     Active Substance: METHOTREXATE
     Dosage: 12.5 MG, QW
     Route: 065
  30. METHOTREXATE [Suspect]
     Active Substance: METHOTREXATE
     Dosage: 12 MG, QW
     Route: 058
  31. METHOTREXATE [Suspect]
     Active Substance: METHOTREXATE
     Dosage: 10 MG, QW
     Route: 058
  32. METHOTREXATE [Suspect]
     Active Substance: METHOTREXATE
     Dosage: 17.5 MG, QW
     Route: 058
  33. METHOTREXATE [Suspect]
     Active Substance: METHOTREXATE
     Dosage: 10 MG, QW
     Route: 058
  34. METHOTREXATE [Suspect]
     Active Substance: METHOTREXATE
     Dosage: 10 MG, Q4W
     Route: 058
  35. METHOTREXATE [Suspect]
     Active Substance: METHOTREXATE
     Dosage: 15 MG, Q4W
     Route: 058
  36. METHOTREXATE [Suspect]
     Active Substance: METHOTREXATE
     Dosage: 10 MG, Q4W
     Route: 058
  37. METHOTREXATE [Suspect]
     Active Substance: METHOTREXATE
     Dosage: 15 MG, Q4W
     Route: 058
  38. HYDROXYCHLOROQUINE [Suspect]
     Active Substance: HYDROXYCHLOROQUINE
     Indication: Rheumatoid arthritis
     Dosage: 20 MG, QD
     Route: 048
  39. HYDROXYCHLOROQUINE [Suspect]
     Active Substance: HYDROXYCHLOROQUINE
     Dosage: 200 MG, QD
     Route: 048
  40. HYDROXYCHLOROQUINE [Suspect]
     Active Substance: HYDROXYCHLOROQUINE
     Dosage: UNK
     Route: 065
  41. HYDROXYCHLOROQUINE [Suspect]
     Active Substance: HYDROXYCHLOROQUINE
     Dosage: UNK
     Route: 048
  42. HYDROXYCHLOROQUINE [Suspect]
     Active Substance: HYDROXYCHLOROQUINE
     Dosage: 400 MG
     Route: 065
  43. HYDROXYCHLOROQUINE [Suspect]
     Active Substance: HYDROXYCHLOROQUINE
     Dosage: 680 MG
     Route: 065
  44. HYDROXYCHLOROQUINE [Suspect]
     Active Substance: HYDROXYCHLOROQUINE
     Dosage: 360 MG, QMO (1 EVERY 1 MONTHS)
     Route: 065
  45. ALENDRONATE SODIUM [Suspect]
     Active Substance: ALENDRONATE SODIUM
     Indication: Rheumatoid arthritis
     Dosage: 70 MG, QW
     Route: 048
  46. ALENDRONATE SODIUM [Suspect]
     Active Substance: ALENDRONATE SODIUM
     Dosage: 70 MG, QW
     Route: 058
  47. ALENDRONATE SODIUM [Suspect]
     Active Substance: ALENDRONATE SODIUM
     Dosage: 70 MG, QW
     Route: 065
  48. ALENDRONATE SODIUM [Suspect]
     Active Substance: ALENDRONATE SODIUM
     Dosage: 70 MG
     Route: 065
  49. ALENDRONATE SODIUM [Suspect]
     Active Substance: ALENDRONATE SODIUM
     Dosage: 70 MG, QW
     Route: 065
  50. ALENDRONATE SODIUM [Suspect]
     Active Substance: ALENDRONATE SODIUM
     Dosage: 70 MG (4 EVERY 1 WEEKS)
     Route: 065
  51. ALENDRONATE SODIUM [Suspect]
     Active Substance: ALENDRONATE SODIUM
     Dosage: UNK
     Route: 065
  52. ALENDRONATE SODIUM [Suspect]
     Active Substance: ALENDRONATE SODIUM
     Dosage: 70 MG, QW
     Route: 065
  53. ACTEMRA [Suspect]
     Active Substance: TOCILIZUMAB
     Indication: Rheumatoid arthritis
     Dosage: 680 MG, Q4W (7 MONTHS)
     Route: 042
  54. ACTEMRA [Suspect]
     Active Substance: TOCILIZUMAB
     Dosage: 360 MG, QMO (3 YEARS)
     Route: 042
  55. ACTEMRA [Suspect]
     Active Substance: TOCILIZUMAB
     Dosage: 2.68 MG, Q4W
     Route: 042
  56. ACTEMRA [Suspect]
     Active Substance: TOCILIZUMAB
     Dosage: 360 MG, QMO
     Route: 065
  57. ACTEMRA [Suspect]
     Active Substance: TOCILIZUMAB
     Dosage: 680 MG, Q4W
     Route: 065
  58. ACTEMRA [Suspect]
     Active Substance: TOCILIZUMAB
     Dosage: 360 MG
     Route: 065
  59. ACTEMRA [Suspect]
     Active Substance: TOCILIZUMAB
     Dosage: 360 MG, QMO
     Route: 042
  60. ACTEMRA [Suspect]
     Active Substance: TOCILIZUMAB
     Dosage: 680 MG, QW
     Route: 042
  61. ACTEMRA [Suspect]
     Active Substance: TOCILIZUMAB
     Dosage: 680 MG
     Route: 042
  62. ACTEMRA [Suspect]
     Active Substance: TOCILIZUMAB
     Dosage: 360 MG, QW
     Route: 065
  63. ACTEMRA [Suspect]
     Active Substance: TOCILIZUMAB
     Dosage: 2.68 MG
     Route: 065
  64. ACTEMRA [Suspect]
     Active Substance: TOCILIZUMAB
     Dosage: 300 MG, QMO
     Route: 065
  65. ACTEMRA [Suspect]
     Active Substance: TOCILIZUMAB
     Dosage: UNK
     Route: 058
  66. ACTEMRA [Suspect]
     Active Substance: TOCILIZUMAB
     Dosage: 380 MG
     Route: 065
  67. ACTEMRA [Suspect]
     Active Substance: TOCILIZUMAB
     Dosage: 360 MG, QMO
     Route: 065
  68. ACTEMRA [Suspect]
     Active Substance: TOCILIZUMAB
     Dosage: 680 MG, QMO
     Route: 065
  69. ACTEMRA [Suspect]
     Active Substance: TOCILIZUMAB
     Dosage: 360 MG, QW (1 EVERY 1 WEEKS)
     Route: 065
  70. ACTEMRA [Suspect]
     Active Substance: TOCILIZUMAB
     Dosage: 300 MG, QMO (1 EVERY 1 MONTHS)
     Route: 005
  71. ACTEMRA [Suspect]
     Active Substance: TOCILIZUMAB
     Dosage: UNK
     Route: 065
  72. ACTEMRA [Suspect]
     Active Substance: TOCILIZUMAB
     Dosage: 360 MG, QMO
     Route: 065
  73. ACTEMRA [Suspect]
     Active Substance: TOCILIZUMAB
     Dosage: 680 MG, QMO
     Route: 065
  74. ACTEMRA [Suspect]
     Active Substance: TOCILIZUMAB
     Dosage: 300 MG, QMO
     Route: 065
  75. ACTEMRA [Suspect]
     Active Substance: TOCILIZUMAB
     Dosage: UNK
     Route: 058
  76. ACTEMRA [Suspect]
     Active Substance: TOCILIZUMAB
     Dosage: 360 MG
     Route: 065
  77. APREMILAST [Suspect]
     Active Substance: APREMILAST
     Indication: Rheumatoid arthritis
     Dosage: 60 MG, 2 EVERY 1 DAYS
     Route: 065
  78. APREMILAST [Suspect]
     Active Substance: APREMILAST
     Indication: Psoriatic arthropathy
     Dosage: UNK
     Route: 065
  79. APREMILAST [Suspect]
     Active Substance: APREMILAST
     Indication: Psoriasis
     Dosage: 60 MG, BIW (2 EVERY 1 WEEKS)
     Route: 065
  80. ALENDRONIC ACID [Suspect]
     Active Substance: ALENDRONIC ACID
     Indication: Product used for unknown indication
     Dosage: 70 MG, QW
     Route: 065
  81. IBUPROFEN [Suspect]
     Active Substance: IBUPROFEN
     Indication: Product used for unknown indication
     Dosage: 600 MG
     Route: 048
  82. LEFLUNOMIDE [Suspect]
     Active Substance: LEFLUNOMIDE
     Indication: Rheumatoid arthritis
     Dosage: 20 MG
     Route: 065
  83. LEFLUNOMIDE [Suspect]
     Active Substance: LEFLUNOMIDE
     Dosage: 500 MG
     Route: 048
  84. LEFLUNOMIDE [Suspect]
     Active Substance: LEFLUNOMIDE
     Dosage: 380 MG
     Route: 048
  85. LEFLUNOMIDE [Suspect]
     Active Substance: LEFLUNOMIDE
     Dosage: 500 MG
     Route: 048
  86. LEFLUNOMIDE [Suspect]
     Active Substance: LEFLUNOMIDE
     Dosage: UNK
     Route: 048
  87. LEFLUNOMIDE [Suspect]
     Active Substance: LEFLUNOMIDE
     Dosage: 20 MG
     Route: 065
  88. LEFLUNOMIDE [Suspect]
     Active Substance: LEFLUNOMIDE
     Dosage: UNK
     Route: 065
  89. LEFLUNOMIDE [Suspect]
     Active Substance: LEFLUNOMIDE
     Dosage: 20 MG
     Route: 048
  90. LEFLUNOMIDE [Suspect]
     Active Substance: LEFLUNOMIDE
     Dosage: 500 MG
     Route: 048
  91. LEFLUNOMIDE [Suspect]
     Active Substance: LEFLUNOMIDE
     Dosage: UNK
     Route: 065
  92. ARAVA [Suspect]
     Active Substance: LEFLUNOMIDE
     Indication: Rheumatoid arthritis
     Dosage: 20 MG, QD
     Route: 065
  93. ARAVA [Suspect]
     Active Substance: LEFLUNOMIDE
     Dosage: UNK
     Route: 065
  94. ARAVA [Suspect]
     Active Substance: LEFLUNOMIDE
     Dosage: UNK
     Route: 048
  95. ARAVA [Suspect]
     Active Substance: LEFLUNOMIDE
     Dosage: UNK
     Route: 065
  96. ARAVA [Suspect]
     Active Substance: LEFLUNOMIDE
     Dosage: UNK
     Route: 048
  97. AZATHIOPRINE [Suspect]
     Active Substance: AZATHIOPRINE
     Indication: Product used for unknown indication
     Dosage: UNK
     Route: 065
  98. AZATHIOPRINE [Suspect]
     Active Substance: AZATHIOPRINE
     Dosage: UNK
     Route: 065
  99. CELEBREX [Suspect]
     Active Substance: CELECOXIB
     Indication: Rheumatoid arthritis
     Dosage: UNK
     Route: 065
  100. CIMZIA [Suspect]
     Active Substance: CERTOLIZUMAB PEGOL
     Indication: Psoriatic arthropathy
     Dosage: UNK
     Route: 058
  101. CIMZIA [Suspect]
     Active Substance: CERTOLIZUMAB PEGOL
     Indication: Rheumatoid arthritis
  102. CODEINE SULFATE [Suspect]
     Active Substance: CODEINE SULFATE
     Indication: Product used for unknown indication
     Dosage: UNK
     Route: 065
  103. ENBREL [Suspect]
     Active Substance: ETANERCEPT
     Indication: Rheumatoid arthritis
     Dosage: 250 MG, BIW
     Route: 065
  104. ENBREL [Suspect]
     Active Substance: ETANERCEPT
     Indication: Psoriatic arthropathy
     Dosage: 25 MG, QW
     Route: 065
  105. ENBREL [Suspect]
     Active Substance: ETANERCEPT
     Indication: Psoriasis
     Dosage: 25 MG, Q2W
     Route: 065
  106. ENBREL [Suspect]
     Active Substance: ETANERCEPT
     Dosage: 50 MG
     Route: 065
  107. ENBREL [Suspect]
     Active Substance: ETANERCEPT
     Dosage: 25 MG, QW
     Route: 065
  108. ENBREL [Suspect]
     Active Substance: ETANERCEPT
     Dosage: 50 MG, QW
     Route: 065
  109. ENBREL [Suspect]
     Active Substance: ETANERCEPT
     Dosage: UNK
     Route: 058
  110. ENBREL [Suspect]
     Active Substance: ETANERCEPT
     Dosage: 25 MG
     Route: 065
  111. ENBREL [Suspect]
     Active Substance: ETANERCEPT
     Dosage: 25 MG, BIW
     Route: 065
  112. ENBREL [Suspect]
     Active Substance: ETANERCEPT
     Dosage: 50 MG, QW
     Route: 065
  113. ENBREL [Suspect]
     Active Substance: ETANERCEPT
     Dosage: 25 MG, QW
     Route: 058
  114. ENBREL [Suspect]
     Active Substance: ETANERCEPT
     Dosage: 25 MG, QW
     Route: 058
  115. ENBREL [Suspect]
     Active Substance: ETANERCEPT
     Dosage: 50 MG, QW
     Route: 058
  116. ENBREL [Suspect]
     Active Substance: ETANERCEPT
     Dosage: 100 MG, QW
     Route: 065
  117. ENBREL [Suspect]
     Active Substance: ETANERCEPT
     Dosage: 25 MG, QW
     Route: 065
  118. ENBREL [Suspect]
     Active Substance: ETANERCEPT
     Dosage: 100 MG, QW
     Route: 065
  119. ENBREL [Suspect]
     Active Substance: ETANERCEPT
     Dosage: 50 MG, QW
     Route: 058
  120. ENBREL [Suspect]
     Active Substance: ETANERCEPT
     Dosage: 25 MG, QW
     Route: 058
  121. HYDROXYCHLOROQUINE SULFATE [Suspect]
     Active Substance: HYDROXYCHLOROQUINE SULFATE
     Indication: Rheumatoid arthritis
     Dosage: 20 MG, QD
     Route: 048
  122. HYDROXYCHLOROQUINE SULFATE [Suspect]
     Active Substance: HYDROXYCHLOROQUINE SULFATE
     Dosage: UNK
     Route: 048
  123. HYDROXYCHLOROQUINE SULFATE [Suspect]
     Active Substance: HYDROXYCHLOROQUINE SULFATE
     Dosage: 680 MG
     Route: 065
  124. HYDROXYCHLOROQUINE SULFATE [Suspect]
     Active Substance: HYDROXYCHLOROQUINE SULFATE
     Dosage: 200 MG
     Route: 048
  125. HYDROXYCHLOROQUINE SULFATE [Suspect]
     Active Substance: HYDROXYCHLOROQUINE SULFATE
     Dosage: 360 MG, QMO
     Route: 065
  126. HYDROXYCHLOROQUINE SULFATE [Suspect]
     Active Substance: HYDROXYCHLOROQUINE SULFATE
     Dosage: 400 MG
     Route: 048
  127. HYDROXYCHLOROQUINE SULFATE [Suspect]
     Active Substance: HYDROXYCHLOROQUINE SULFATE
     Dosage: 200 MG, QD
     Route: 048
  128. HYDROXYCHLOROQUINE SULFATE [Suspect]
     Active Substance: HYDROXYCHLOROQUINE SULFATE
     Dosage: 200 MG, QD
     Route: 042
  129. HYDROXYCHLOROQUINE SULFATE [Suspect]
     Active Substance: HYDROXYCHLOROQUINE SULFATE
     Dosage: 400 MG
     Route: 065
  130. HYDROXYCHLOROQUINE SULFATE [Suspect]
     Active Substance: HYDROXYCHLOROQUINE SULFATE
     Dosage: 20 MG, QD
     Route: 048
  131. HYDROXYCHLOROQUINE SULFATE [Suspect]
     Active Substance: HYDROXYCHLOROQUINE SULFATE
     Dosage: 400 MG, QD
     Route: 065
  132. HYDROXYCHLOROQUINE SULFATE [Suspect]
     Active Substance: HYDROXYCHLOROQUINE SULFATE
     Dosage: UNK
     Route: 067
  133. HUMIRA [Suspect]
     Active Substance: ADALIMUMAB
     Indication: Rheumatoid arthritis
     Dosage: 40 MG, Q2W, SOLUTION
     Route: 058
  134. HUMIRA [Suspect]
     Active Substance: ADALIMUMAB
     Indication: Psoriatic arthropathy
     Dosage: 40 MG, Q2W (SOLUTION FOR INJECTION IN PRE-FILLED SYRINGE)
     Route: 058
  135. HUMIRA [Suspect]
     Active Substance: ADALIMUMAB
     Dosage: 40 MG
     Route: 058
  136. HUMIRA [Suspect]
     Active Substance: ADALIMUMAB
     Dosage: 40 MG, BIW
     Route: 058
  137. HUMIRA [Suspect]
     Active Substance: ADALIMUMAB
     Dosage: 40 MG, QW
     Route: 058
  138. HUMIRA [Suspect]
     Active Substance: ADALIMUMAB
     Dosage: UNK
     Route: 058
  139. HUMIRA [Suspect]
     Active Substance: ADALIMUMAB
     Dosage: 40 MG, CYCLIC
     Route: 058
  140. HUMIRA [Suspect]
     Active Substance: ADALIMUMAB
     Dosage: UNK
     Route: 065
  141. INFLIXIMAB [Suspect]
     Active Substance: INFLIXIMAB
     Indication: Rheumatoid arthritis
     Dosage: UNK
     Route: 042
  142. INFLIXIMAB [Suspect]
     Active Substance: INFLIXIMAB
     Indication: Psoriatic arthropathy
     Dosage: UNK
     Route: 048
  143. INFLIXIMAB [Suspect]
     Active Substance: INFLIXIMAB
     Dosage: UNK
     Route: 042
  144. METHOTREXATE [Suspect]
     Active Substance: METHOTREXATE
     Indication: Rheumatoid arthritis
     Dosage: 10 MG, QW
     Route: 058
  145. METHOTREXATE [Suspect]
     Active Substance: METHOTREXATE
     Dosage: 10 MG, Q4W
     Route: 048
  146. METHOTREXATE [Suspect]
     Active Substance: METHOTREXATE
     Dosage: 15 MG, QW
     Route: 058
  147. METHOTREXATE [Suspect]
     Active Substance: METHOTREXATE
     Dosage: 10 MG, QW
     Route: 058
  148. METHOTREXATE [Suspect]
     Active Substance: METHOTREXATE
     Dosage: 70 MG, QW (SOLUTION FOR INJECTION)
     Route: 058
  149. METHOTREXATE [Suspect]
     Active Substance: METHOTREXATE
     Dosage: 17.5 MG, QW
     Route: 058
  150. METHOTREXATE [Suspect]
     Active Substance: METHOTREXATE
     Dosage: 12 MG, QW (SOLUTION FOR INJECTION)
     Route: 058
  151. METHOTREXATE [Suspect]
     Active Substance: METHOTREXATE
     Dosage: 12.5 MG, QW
     Route: 048
  152. METHOTREXATE [Suspect]
     Active Substance: METHOTREXATE
     Dosage: 10 MG, QW
     Route: 048
  153. METHOTREXATE [Suspect]
     Active Substance: METHOTREXATE
     Dosage: 12.5 MG, QW
     Route: 058
  154. METHOTREXATE [Suspect]
     Active Substance: METHOTREXATE
     Dosage: 10 MG, QW
     Route: 048
  155. METHOTREXATE [Suspect]
     Active Substance: METHOTREXATE
     Dosage: 25 MG, QW
     Route: 048
  156. METHOTREXATE [Suspect]
     Active Substance: METHOTREXATE
     Dosage: 12 MG, QW
     Route: 065
  157. METHOTREXATE [Suspect]
     Active Substance: METHOTREXATE
     Dosage: 15 MG
     Route: 058
  158. METHOTREXATE [Suspect]
     Active Substance: METHOTREXATE
     Dosage: 12.5 MG
     Route: 058
  159. METHOTREXATE [Suspect]
     Active Substance: METHOTREXATE
     Dosage: 10 MG
     Route: 065
  160. METHOTREXATE [Suspect]
     Active Substance: METHOTREXATE
     Dosage: 12.5 MG, QW
     Route: 058
  161. METHOTREXATE [Suspect]
     Active Substance: METHOTREXATE
     Dosage: 12.5 MG, QW
     Route: 065
  162. METHOTREXATE [Suspect]
     Active Substance: METHOTREXATE
     Dosage: 12 MG
     Route: 065
  163. METHOTREXATE [Suspect]
     Active Substance: METHOTREXATE
     Dosage: 70 MG, QW
     Route: 058
  164. METHOTREXATE [Suspect]
     Active Substance: METHOTREXATE
     Dosage: 12 MG, QW
     Route: 065
  165. METHOTREXATE [Suspect]
     Active Substance: METHOTREXATE
     Dosage: 17.5 MG
     Route: 065
  166. METHOTREXATE [Suspect]
     Active Substance: METHOTREXATE
     Dosage: 15 MG, QW (SOLUTION FOR INJECTION)
     Route: 058
  167. METHOTREXATE [Suspect]
     Active Substance: METHOTREXATE
     Dosage: 12 MG, QW
     Route: 058
  168. METHOTREXATE [Suspect]
     Active Substance: METHOTREXATE
     Dosage: 17.5 MG, QW
     Route: 058
  169. METHOTREXATE [Suspect]
     Active Substance: METHOTREXATE
     Dosage: 12 MG
     Route: 065
  170. METHOTREXATE [Suspect]
     Active Substance: METHOTREXATE
     Dosage: 10 MG
     Route: 065
  171. METHOTREXATE [Suspect]
     Active Substance: METHOTREXATE
     Dosage: 10 MG, QW
     Route: 048
  172. METHOTREXATE [Suspect]
     Active Substance: METHOTREXATE
     Dosage: 10 MG, BIW
     Route: 065
  173. METHOTREXATE [Suspect]
     Active Substance: METHOTREXATE
     Dosage: 10 MG, QW
     Route: 058
  174. METHOTREXATE [Suspect]
     Active Substance: METHOTREXATE
     Dosage: 10 MG, QW
     Route: 058
  175. METHOTREXATE [Suspect]
     Active Substance: METHOTREXATE
     Dosage: 17.5 MG, QW
     Route: 058
  176. METHOTREXATE [Suspect]
     Active Substance: METHOTREXATE
     Dosage: 10 MG, BIW
     Route: 058
  177. METHOTREXATE [Suspect]
     Active Substance: METHOTREXATE
     Dosage: 12.5 MG, QW
     Route: 065
  178. METHOTREXATE [Suspect]
     Active Substance: METHOTREXATE
     Dosage: 15 MG, QW
     Route: 058
  179. METHOTREXATE [Suspect]
     Active Substance: METHOTREXATE
     Dosage: 12 MG, QMO
     Route: 058
  180. METHOTREXATE [Suspect]
     Active Substance: METHOTREXATE
     Dosage: 25 MG
     Route: 065
  181. METHOTREXATE [Suspect]
     Active Substance: METHOTREXATE
     Dosage: 17.5 MG, QW
     Route: 065
  182. METHOTREXATE [Suspect]
     Active Substance: METHOTREXATE
     Dosage: 17.5 MG, QMO
     Route: 065
  183. METHOTREXATE [Suspect]
     Active Substance: METHOTREXATE
     Dosage: 12 MG, QW
     Route: 058
  184. METHOTREXATE [Suspect]
     Active Substance: METHOTREXATE
     Dosage: UNK, QW
     Route: 058
  185. METHOTREXATE [Suspect]
     Active Substance: METHOTREXATE
     Dosage: UNK, QW
     Route: 065
  186. METHOTREXATE [Suspect]
     Active Substance: METHOTREXATE
     Dosage: 25 MG
     Route: 048
  187. METHOTREXATE [Suspect]
     Active Substance: METHOTREXATE
     Dosage: 20 MG, QW
     Route: 065
  188. METHOTREXATE [Suspect]
     Active Substance: METHOTREXATE
     Dosage: 12 MG, QW
     Route: 065
  189. METHOTREXATE [Suspect]
     Active Substance: METHOTREXATE
     Dosage: 12.5 MG, QMO
     Route: 065
  190. METHOTREXATE [Suspect]
     Active Substance: METHOTREXATE
     Dosage: 12.5 MG, QW
     Route: 065
  191. METHOTREXATE [Suspect]
     Active Substance: METHOTREXATE
     Dosage: 10 MG, QW
     Route: 048
  192. METHOTREXATE [Suspect]
     Active Substance: METHOTREXATE
     Dosage: UNK, QMO
     Route: 048
  193. METHOTREXATE [Suspect]
     Active Substance: METHOTREXATE
     Dosage: 10 MG, QW (1 EVERY 1 WEEKS)
     Route: 048
  194. MYOCHRYSINE [Suspect]
     Active Substance: GOLD SODIUM THIOMALATE
     Indication: Rheumatoid arthritis
     Dosage: 50 MG, Q2W
     Route: 030
  195. MYOCHRYSINE [Suspect]
     Active Substance: GOLD SODIUM THIOMALATE
     Dosage: 50 MG, QMO
     Route: 030
  196. MYOCHRYSINE [Suspect]
     Active Substance: GOLD SODIUM THIOMALATE
     Dosage: 25 MG, QW
     Route: 030
  197. MYOCHRYSINE [Suspect]
     Active Substance: GOLD SODIUM THIOMALATE
     Dosage: 50 MG, QMO (SOLUTION)
     Route: 051
  198. MYOCHRYSINE [Suspect]
     Active Substance: GOLD SODIUM THIOMALATE
     Dosage: 50 MG, QW
     Route: 030
  199. MYOCHRYSINE [Suspect]
     Active Substance: GOLD SODIUM THIOMALATE
     Dosage: 50 MG, QMO
     Route: 058
  200. MYOCHRYSINE [Suspect]
     Active Substance: GOLD SODIUM THIOMALATE
     Dosage: 50 MG, QMO
     Route: 030
  201. MYOCHRYSINE [Suspect]
     Active Substance: GOLD SODIUM THIOMALATE
     Dosage: 25 MG, QW
     Route: 030
  202. MYOCHRYSINE [Suspect]
     Active Substance: GOLD SODIUM THIOMALATE
     Dosage: 50 MG, QMO
     Route: 065
  203. MYOCHRYSINE [Suspect]
     Active Substance: GOLD SODIUM THIOMALATE
     Dosage: 10 MG
     Route: 065
  204. MYOCHRYSINE [Suspect]
     Active Substance: GOLD SODIUM THIOMALATE
     Dosage: 50 MG, CYCLIC
     Route: 030
  205. MYOCHRYSINE [Suspect]
     Active Substance: GOLD SODIUM THIOMALATE
     Dosage: 25 MG, QW
     Route: 051
  206. NAPROXEN [Suspect]
     Active Substance: NAPROXEN
     Indication: Product used for unknown indication
     Dosage: UNK
     Route: 065
  207. IBUPROFEN [Suspect]
     Active Substance: IBUPROFEN
     Indication: Product used for unknown indication
     Dosage: 600 MG, QD
     Route: 048
  208. IBUPROFEN [Suspect]
     Active Substance: IBUPROFEN
     Dosage: 600 MG, Q24H (1 EVERY 24 HOURS)
     Route: 048
  209. IBUPROFEN [Suspect]
     Active Substance: IBUPROFEN
     Dosage: UNK
     Route: 048
  210. IBUPROFEN [Suspect]
     Active Substance: IBUPROFEN
     Dosage: 600 MG
     Route: 048
  211. IBUPROFEN [Suspect]
     Active Substance: IBUPROFEN
     Dosage: UNK, Q24H (1 EVERY 24 HOURS)
     Route: 048
  212. ORENCIA [Suspect]
     Active Substance: ABATACEPT
     Indication: Rheumatoid arthritis
     Dosage: 760 MG, QW
     Route: 065
  213. ORENCIA [Suspect]
     Active Substance: ABATACEPT
     Indication: Psoriatic arthropathy
     Dosage: 780 MG, QW
     Route: 042
  214. ORENCIA [Suspect]
     Active Substance: ABATACEPT
     Dosage: 780 MG, QW
     Route: 058
  215. ORENCIA [Suspect]
     Active Substance: ABATACEPT
     Dosage: 760 MG, QW
     Route: 042
  216. ORENCIA [Suspect]
     Active Substance: ABATACEPT
     Dosage: UNK
     Route: 058
  217. ORENCIA [Suspect]
     Active Substance: ABATACEPT
     Dosage: UNK
     Route: 042
  218. ORENCIA [Suspect]
     Active Substance: ABATACEPT
     Dosage: UNK
     Route: 065
  219. REMICADE [Suspect]
     Active Substance: INFLIXIMAB
     Indication: Rheumatoid arthritis
     Dosage: UNK
     Route: 042
  220. REMICADE [Suspect]
     Active Substance: INFLIXIMAB
     Indication: Psoriatic arthropathy
     Dosage: UNK
     Route: 065
  221. SIMPONI [Suspect]
     Active Substance: GOLIMUMAB
     Indication: Psoriatic arthropathy
     Dosage: 360 MG, QMO
     Route: 058
  222. SIMPONI [Suspect]
     Active Substance: GOLIMUMAB
     Dosage: 680 MG, QMO
     Route: 065
  223. SIMPONI [Suspect]
     Active Substance: GOLIMUMAB
     Dosage: 680 MG, QMO
     Route: 058
  224. SIMPONI [Suspect]
     Active Substance: GOLIMUMAB
     Dosage: 360 MG, QMO
     Route: 065
  225. SIMPONI [Suspect]
     Active Substance: GOLIMUMAB
     Dosage: 50 MG, QMO
     Route: 058
  226. SIMPONI [Suspect]
     Active Substance: GOLIMUMAB
     Dosage: 50 MG
     Route: 058
  227. SIMPONI [Suspect]
     Active Substance: GOLIMUMAB
     Dosage: UNK
     Route: 065
  228. SIMPONI [Suspect]
     Active Substance: GOLIMUMAB
     Dosage: UNK
     Route: 058
  229. SULFASALAZINE [Suspect]
     Active Substance: SULFASALAZINE
     Indication: Rheumatoid arthritis
     Dosage: 500 MG
     Route: 065
  230. SULFASALAZINE [Suspect]
     Active Substance: SULFASALAZINE
     Dosage: UNK
     Route: 065
  231. SULFASALAZINE [Suspect]
     Active Substance: SULFASALAZINE
     Dosage: 500 MG
     Route: 065
  232. SULFASALAZINE [Suspect]
     Active Substance: SULFASALAZINE
     Dosage: 500 MG
     Route: 005
  233. SULFASALAZINE [Suspect]
     Active Substance: SULFASALAZINE
     Dosage: UNK
     Route: 005
  234. SULFASALAZINE [Suspect]
     Active Substance: SULFASALAZINE
     Dosage: 500 MG
     Route: 065
  235. SULFASALAZINE [Suspect]
     Active Substance: SULFASALAZINE
     Dosage: 2 G
     Route: 065
  236. STELARA [Suspect]
     Active Substance: USTEKINUMAB
     Indication: Psoriatic arthropathy
     Dosage: UNK
     Route: 058
  237. TOCILIZUMAB [Suspect]
     Active Substance: TOCILIZUMAB
     Indication: Rheumatoid arthritis
     Dosage: 680 MG, Q4W
     Route: 065
  238. TOCILIZUMAB [Suspect]
     Active Substance: TOCILIZUMAB
     Dosage: 360 MG, QMO
     Route: 065
  239. TOCILIZUMAB [Suspect]
     Active Substance: TOCILIZUMAB
     Dosage: 380 MG
     Route: 065
  240. TOCILIZUMAB [Suspect]
     Active Substance: TOCILIZUMAB
     Dosage: 680 MG
     Route: 065
  241. TOCILIZUMAB [Suspect]
     Active Substance: TOCILIZUMAB
     Dosage: 360 MG, QMO
     Route: 065
  242. TOCILIZUMAB [Suspect]
     Active Substance: TOCILIZUMAB
     Dosage: 360 MG
     Route: 065
  243. TOCILIZUMAB [Suspect]
     Active Substance: TOCILIZUMAB
     Dosage: 360 MG
     Route: 065
  244. TOCILIZUMAB [Suspect]
     Active Substance: TOCILIZUMAB
     Dosage: 360 MG
     Route: 065
  245. TOCILIZUMAB [Suspect]
     Active Substance: TOCILIZUMAB
     Dosage: 680 MG
     Route: 065
  246. TOCILIZUMAB [Suspect]
     Active Substance: TOCILIZUMAB
     Dosage: 680 MG, QMO
     Route: 065
  247. TOCILIZUMAB [Suspect]
     Active Substance: TOCILIZUMAB
     Dosage: 360 MG, QW
     Route: 065
  248. FOSAMAX [Suspect]
     Active Substance: ALENDRONATE SODIUM
     Indication: Rheumatoid arthritis
     Dosage: 70 MG, QW
     Route: 048
  249. FOSAMAX [Suspect]
     Active Substance: ALENDRONATE SODIUM
     Dosage: 70 MG, QW (1 EVERY 1 WEEKS)
     Route: 065
  250. CODEINE [Suspect]
     Active Substance: CODEINE
     Indication: Rheumatoid arthritis
     Dosage: UNK
     Route: 065
  251. CODEINE [Suspect]
     Active Substance: CODEINE
     Dosage: UNK
     Route: 005
  252. CODEINE [Suspect]
     Active Substance: CODEINE
     Dosage: UNK
     Route: 065
  253. GOLD [Suspect]
     Active Substance: GOLD
     Indication: Product used for unknown indication
     Dosage: UNK
     Route: 065
  254. ANAKINRA [Suspect]
     Active Substance: ANAKINRA
     Indication: Rheumatoid arthritis
     Dosage: UNK
     Route: 065
  255. MOTRIN [Suspect]
     Active Substance: IBUPROFEN
     Indication: Product used for unknown indication
     Dosage: UNK, Q24H (1 EVERY 24 HOURS)
     Route: 048
  256. MOTRIN [Suspect]
     Active Substance: IBUPROFEN
     Dosage: 600 MG, Q24H (1 EVERY 24 HOURS)
     Route: 048
  257. OTEZLA [Suspect]
     Active Substance: APREMILAST
     Indication: Rheumatoid arthritis
     Dosage: UNK
     Route: 065
  258. OTEZLA [Suspect]
     Active Substance: APREMILAST
     Indication: Psoriatic arthropathy
     Dosage: 60 MG, BID (2 EVERY 1 DAYS)
     Route: 065
  259. OTEZLA [Suspect]
     Active Substance: APREMILAST
     Indication: Psoriasis
  260. XELJANZ [Suspect]
     Active Substance: TOFACITINIB CITRATE
     Indication: Rheumatoid arthritis
     Dosage: 5 MG, BID
     Route: 048
  261. XELJANZ [Suspect]
     Active Substance: TOFACITINIB CITRATE
     Dosage: UNK
     Route: 065
  262. XELJANZ [Suspect]
     Active Substance: TOFACITINIB CITRATE
     Dosage: 380 MG
     Route: 065
  263. XELJANZ [Suspect]
     Active Substance: TOFACITINIB CITRATE
     Dosage: 10 MG, QD
     Route: 048
  264. XELJANZ [Suspect]
     Active Substance: TOFACITINIB CITRATE
     Dosage: 360 MG, QMO
     Route: 048
  265. XELJANZ [Suspect]
     Active Substance: TOFACITINIB CITRATE
     Dosage: 2 MG, QD
     Route: 048
  266. BENADRYL [Concomitant]
     Active Substance: DIPHENHYDRAMINE HYDROCHLORIDE
     Indication: Product used for unknown indication
     Dosage: UNK
     Route: 065
  267. ULORIC [Concomitant]
     Active Substance: FEBUXOSTAT
     Indication: Product used for unknown indication
     Dosage: 80 MG, BID
     Route: 048
  268. OXYCODONE [Concomitant]
     Active Substance: OXYCODONE
     Indication: Product used for unknown indication
     Dosage: UNK
     Route: 065
  269. MOGADAN [Concomitant]
     Indication: Product used for unknown indication
     Dosage: 5 MG
     Route: 048
  270. NITRAZEPAM [Concomitant]
     Active Substance: NITRAZEPAM
     Indication: Product used for unknown indication
     Dosage: 5 MG
     Route: 048
  271. COLCHICINE [Concomitant]
     Active Substance: COLCHICINE
     Indication: Product used for unknown indication
     Dosage: UNK
     Route: 048
  272. DEXILANT [Concomitant]
     Active Substance: DEXLANSOPRAZOLE
     Indication: Product used for unknown indication
     Dosage: UNK
     Route: 048
  273. DEXILANT [Concomitant]
     Active Substance: DEXLANSOPRAZOLE
     Dosage: UNK (CAPSULE, DELAYED RELEASE)
     Route: 065
  274. FEBUXOSTAT [Concomitant]
     Active Substance: FEBUXOSTAT
     Indication: Product used for unknown indication
     Dosage: UNK
     Route: 065
  275. GRAVOL [Concomitant]
     Active Substance: DIMENHYDRINATE
     Indication: Product used for unknown indication
     Dosage: UNK
     Route: 065
  276. FOLIC ACID [Concomitant]
     Active Substance: FOLIC ACID
     Indication: Product used for unknown indication
     Dosage: UNK
     Route: 065
  277. ACETAMINOPHEN [Concomitant]
     Active Substance: ACETAMINOPHEN
     Indication: Product used for unknown indication
     Dosage: UNK
     Route: 065
  278. GABAPENTIN [Concomitant]
     Active Substance: GABAPENTIN
     Indication: Pain
     Dosage: UNK
     Route: 065
  279. TYLENOL 8 HR ARTHRITIS PAIN [Concomitant]
     Active Substance: ACETAMINOPHEN
     Indication: Pain
     Dosage: 2 DOSAGE FORM
     Route: 065
  280. TOFACITINIB CITRATE [Concomitant]
     Active Substance: TOFACITINIB CITRATE
     Indication: Product used for unknown indication
     Dosage: UNK
     Route: 065
  281. NITRAZEPAM [Concomitant]
     Active Substance: NITRAZEPAM
     Indication: Product used for unknown indication
     Dosage: 5 MG
     Route: 048

REACTIONS (41)
  - Alanine aminotransferase increased [Not Recovered/Not Resolved]
  - Alopecia [Not Recovered/Not Resolved]
  - Arthralgia [Not Recovered/Not Resolved]
  - Aspartate aminotransferase increased [Not Recovered/Not Resolved]
  - Basal cell carcinoma [Not Recovered/Not Resolved]
  - Blood parathyroid hormone decreased [Not Recovered/Not Resolved]
  - C-reactive protein increased [Not Recovered/Not Resolved]
  - Condition aggravated [Not Recovered/Not Resolved]
  - Drug hypersensitivity [Not Recovered/Not Resolved]
  - Drug tolerance decreased [Not Recovered/Not Resolved]
  - Gastric disorder [Not Recovered/Not Resolved]
  - Granuloma skin [Not Recovered/Not Resolved]
  - Hypercalcaemia [Not Recovered/Not Resolved]
  - Hypersensitivity [Not Recovered/Not Resolved]
  - Inflammation [Not Recovered/Not Resolved]
  - Musculoskeletal stiffness [Not Recovered/Not Resolved]
  - Panniculitis [Not Recovered/Not Resolved]
  - Peripheral swelling [Not Recovered/Not Resolved]
  - Rash pruritic [Not Recovered/Not Resolved]
  - Red blood cell sedimentation rate increased [Not Recovered/Not Resolved]
  - Rheumatoid nodule [Not Recovered/Not Resolved]
  - Skin necrosis [Not Recovered/Not Resolved]
  - Ulcer [Not Recovered/Not Resolved]
  - Abdominal discomfort [Not Recovered/Not Resolved]
  - Malaise [Not Recovered/Not Resolved]
  - Anaphylactic reaction [Not Recovered/Not Resolved]
  - Hepatotoxicity [Not Recovered/Not Resolved]
  - Ill-defined disorder [Not Recovered/Not Resolved]
  - Loss of consciousness [Not Recovered/Not Resolved]
  - Musculoskeletal pain [Not Recovered/Not Resolved]
  - Syncope [Not Recovered/Not Resolved]
  - Deformity [Not Recovered/Not Resolved]
  - Neck pain [Not Recovered/Not Resolved]
  - Pain in jaw [Not Recovered/Not Resolved]
  - Pain in extremity [Not Recovered/Not Resolved]
  - Blood creatinine increased [Not Recovered/Not Resolved]
  - Infusion related reaction [Not Recovered/Not Resolved]
  - Drug tolerance [Not Recovered/Not Resolved]
  - Drug eruption [Not Recovered/Not Resolved]
  - Drug intolerance [Not Recovered/Not Resolved]
  - Product use issue [Not Recovered/Not Resolved]
